FAERS Safety Report 6296273-3 (Version None)
Quarter: 2009Q3

REPORT INFORMATION
  Report Type: 
  Country: None (occurrence: None)
  Receive Date: 20090804
  Receipt Date: 20090730
  Transmission Date: 20100115
  Serious: Yes (Other)
  Sender: FDA-Public Use
  Company Number: JP-AVENTIS-200912136JP

PATIENT
  Age: 66 Year
  Sex: Male

DRUGS (3)
  1. LASIX [Suspect]
     Route: 048
  2. PLAVIX [Suspect]
     Route: 048
  3. UNKNOWN DRUG [Concomitant]

REACTIONS (2)
  - BLOOD CREATINE PHOSPHOKINASE INCREASED [None]
  - RHABDOMYOLYSIS [None]
